FAERS Safety Report 6807513-3 (Version None)
Quarter: 2010Q2

REPORT INFORMATION
  Report Type: 
  Country: None (occurrence: None)
  Receive Date: 20100629
  Receipt Date: 20081022
  Transmission Date: 20101027
  Serious: No
  Sender: FDA-Public Use
  Company Number: US-PFIZER INC-2008092403

PATIENT
  Age: 75 Year
  Sex: Male
  Weight: 102.1 kg

DRUGS (5)
  1. VIAGRA [Suspect]
     Indication: ERECTILE DYSFUNCTION
  2. LUNESTA [Concomitant]
  3. PAXIL [Concomitant]
     Dates: start: 20080801, end: 20080801
  4. LIPITOR [Concomitant]
     Dates: start: 20080723, end: 20080801
  5. PLAQUENIL [Concomitant]

REACTIONS (1)
  - DRUG INEFFECTIVE [None]
